FAERS Safety Report 8844269 (Version 2)
Quarter: 2012Q4

REPORT INFORMATION
  Report Type: 
  Country: US (occurrence: US)
  Receive Date: 20121017
  Receipt Date: 20121218
  Transmission Date: 20130627
  Serious: Yes (Hospitalization)
  Sender: FDA-Public Use
  Company Number: US-BAYER-2012-106248

PATIENT
  Age: 29 Year
  Sex: Female

DRUGS (21)
  1. YAZ [Suspect]
     Indication: POLYCYSTIC OVARIAN SYNDROME
  2. YASMIN [Suspect]
  3. OCELLA [Suspect]
  4. AMITRIPTYLINE [Concomitant]
     Dosage: UNK
     Route: 048
     Dates: start: 201001
  5. CELEXA [Concomitant]
     Dosage: UNK
     Route: 048
     Dates: start: 201001
  6. METFORMIN ER [Concomitant]
     Dosage: 500 mg extended release
     Route: 048
     Dates: start: 200907, end: 201001
  7. CIPRO [Concomitant]
     Indication: PNEUMONIA
     Dosage: 500 mg, BID
     Route: 048
     Dates: start: 20100208, end: 20100214
  8. INHALER [Concomitant]
     Dosage: UNK
  9. LEVOTHYROXINE [Concomitant]
     Dosage: 50 mcg, UNK
     Route: 048
     Dates: start: 200905, end: 201001
  10. AZITHROMYCIN [Concomitant]
     Dosage: 250 mg, UNK
     Dates: start: 20091119
  11. CLARINEX [DESLORATADINE] [Concomitant]
     Dosage: 5 mg, UNK
     Route: 048
     Dates: start: 20091119
  12. SMZ-TMP DS [Concomitant]
     Dosage: 800 - 160
     Route: 048
     Dates: start: 200911, end: 200912
  13. HYDROCODONE W/ACETAMINOPHEN [Concomitant]
     Dosage: 5 - 325mg, UNK
     Route: 048
     Dates: start: 20091125
  14. EPIPEN [Concomitant]
     Dosage: 0.3 mg, UNK
     Dates: start: 20100105
  15. CLARITHROMYCIN [Concomitant]
     Dosage: 500 mg, UNK
     Route: 048
     Dates: start: 20100111
  16. CHERATUSSIN AC [Concomitant]
     Dosage: UNK
     Dates: start: 20100111
  17. LEVAQUIN [Concomitant]
     Dosage: 500 mg, UNK
     Route: 048
     Dates: start: 20100114
  18. METHYLPREDNISOLON [Concomitant]
     Dosage: 4 mg, UNK
     Route: 048
     Dates: start: 20100114
  19. SKELAXIN [Concomitant]
     Indication: MUSCLE SPASM
     Dosage: 400 mg, TID
     Route: 048
     Dates: start: 20100208, end: 20100223
  20. ALBUTEROL INHALER [Concomitant]
     Indication: WHEEZING
     Dosage: 2 puff(s), Q4HR PRN
     Route: 045
     Dates: start: 20100208
  21. VALIUM [DIAZEPAM] [Concomitant]
     Indication: ANXIETY
     Dosage: 5 mg, Q6h PRN
     Route: 048

REACTIONS (1)
  - Pulmonary embolism [Recovering/Resolving]
